FAERS Safety Report 15022495 (Version 2)
Quarter: 2018Q2

REPORT INFORMATION
  Report Type: Report from Study
  Country: FR (occurrence: FR)
  Receive Date: 20180618
  Receipt Date: 20180628
  Transmission Date: 20180711
  Serious: Yes (Other)
  Sender: FDA-Public Use
  Company Number: FR-PFIZER INC-2018240548

PATIENT
  Age: 47 Year
  Sex: Male

DRUGS (2)
  1. CELECOXIB. [Suspect]
     Active Substance: CELECOXIB
     Indication: ASPIRIN-EXACERBATED RESPIRATORY DISEASE
     Dosage: A DOSE OF 100 MG, AFTER A CUMULATIVE DOSE OF 200 MG OF CELECOXIB
     Route: 048
  2. PREDNISOLONE. [Concomitant]
     Active Substance: PREDNISOLONE
     Indication: ASTHMA
     Dosage: 5 MG, DAILY
     Route: 048

REACTIONS (3)
  - Asthma [Recovered/Resolved]
  - Bronchospasm [Recovered/Resolved]
  - Forced expiratory volume decreased [Recovered/Resolved]
